FAERS Safety Report 9912137 (Version 2)
Quarter: 2014Q1

REPORT INFORMATION
  Report Type: Report from Study
  Country: CA (occurrence: CA)
  Receive Date: 20140219
  Receipt Date: 20140219
  Transmission Date: 20141002
  Serious: Yes (Hospitalization, Other)
  Sender: FDA-Public Use
  Company Number: CA-BRISTOL-MYERS SQUIBB COMPANY-19814698

PATIENT
  Age: 71 Year
  Sex: Female

DRUGS (8)
  1. ORENCIA [Suspect]
     Indication: RHEUMATOID ARTHRITIS
     Dosage: 1DF=750 UNIT NOS?LOT#3H65580?EXPIRY:JUL2016
     Dates: start: 20090223
  2. EFEXOR [Concomitant]
  3. PARIET [Concomitant]
  4. TRAZODONE HCL [Concomitant]
  5. OXAZEPAM [Concomitant]
  6. NADOLOL [Concomitant]
  7. METHOTREXATE [Concomitant]
  8. RAMIPRIL [Concomitant]

REACTIONS (5)
  - Bone disorder [Unknown]
  - Atrial fibrillation [Unknown]
  - Trigeminal neuralgia [Recovering/Resolving]
  - Hypertonic bladder [Unknown]
  - Dysphagia [Unknown]
